FAERS Safety Report 10222296 (Version 11)
Quarter: 2016Q4

REPORT INFORMATION
  Report Type: Spontaneous
  Country: US (occurrence: US)
  Receive Date: 20140606
  Receipt Date: 20161003
  Transmission Date: 20170206
  Serious: Yes (Hospitalization, Other)
  Sender: FDA-Public Use
  Company Number: US-009507513-1406USA001279

PATIENT
  Sex: Female
  Weight: 89.8 kg

DRUGS (8)
  1. AMBIEN [Concomitant]
     Active Substance: ZOLPIDEM TARTRATE
     Indication: PRODUCT USED FOR UNKNOWN INDICATION
     Dosage: UNK, UNKNOWN
     Route: 048
     Dates: start: 2001
  2. FOSAMAX [Suspect]
     Active Substance: ALENDRONATE SODIUM
     Dosage: 70 MG, QW
     Route: 048
     Dates: end: 201405
  3. ALENDRONATE SODIUM. [Suspect]
     Active Substance: ALENDRONATE SODIUM
     Dosage: 70 MG, QW
     Route: 048
     Dates: start: 20091015, end: 201112
  4. FOSAMAX [Suspect]
     Active Substance: ALENDRONATE SODIUM
     Indication: OSTEOPOROSIS
     Dosage: 10 MG, UNKNOWN
     Route: 048
     Dates: start: 2001, end: 2009
  5. SYNTHROID [Concomitant]
     Active Substance: LEVOTHYROXINE SODIUM
     Indication: PRODUCT USED FOR UNKNOWN INDICATION
     Dosage: 100 MICROGRAM, QD
     Route: 048
     Dates: start: 2001
  6. BENADRYL [Concomitant]
     Active Substance: DIPHENHYDRAMINE HYDROCHLORIDE
     Indication: PRODUCT USED FOR UNKNOWN INDICATION
     Dosage: 25 MG, UNKNOWN
     Route: 048
     Dates: start: 2000
  7. ALENDRONATE SODIUM. [Suspect]
     Active Substance: ALENDRONATE SODIUM
     Indication: OSTEOPOROSIS
     Dosage: 70 MG, QW
     Route: 048
     Dates: start: 20090114, end: 200910
  8. FUROSEMIDE. [Concomitant]
     Active Substance: FUROSEMIDE
     Indication: HYPERTENSION
     Dosage: 20 MG, QD
     Route: 048
     Dates: start: 2001

REACTIONS (46)
  - Hypercholesterolaemia [Unknown]
  - Osteoarthritis [Unknown]
  - Arthropathy [Unknown]
  - Arthralgia [Unknown]
  - Bradycardia [Unknown]
  - Depression [Unknown]
  - Femur fracture [Unknown]
  - Bronchial hyperreactivity [Unknown]
  - Insomnia [Unknown]
  - Wound haematoma [Unknown]
  - Neuritis [Unknown]
  - Spinal osteoarthritis [Unknown]
  - Primary hypothyroidism [Unknown]
  - Fall [Unknown]
  - Osteoarthritis [Unknown]
  - Foot fracture [Unknown]
  - Cholecystectomy [Unknown]
  - Complication associated with device [Unknown]
  - Chest pain [Unknown]
  - Type 2 diabetes mellitus [Unknown]
  - Anaemia [Unknown]
  - Hepatic steatosis [Unknown]
  - Pneumonia [Unknown]
  - Abdominal discomfort [Unknown]
  - Leukocytosis [Recovering/Resolving]
  - Wound infection staphylococcal [Unknown]
  - Effusion [Unknown]
  - Appendicectomy [Unknown]
  - Pneumonia [Unknown]
  - Dystrophic calcification [Unknown]
  - Tonsillar disorder [Unknown]
  - Fall [Unknown]
  - Osteoarthritis [Unknown]
  - Chronic obstructive pulmonary disease [Unknown]
  - Abdominal pain upper [Unknown]
  - Femur fracture [Recovered/Resolved]
  - Atypical femur fracture [Recovered/Resolved]
  - Abdominal pain upper [Unknown]
  - Osteopenia [Unknown]
  - Scoliosis [Unknown]
  - Gastritis [Unknown]
  - Lower limb fracture [Unknown]
  - Adenoidal disorder [Unknown]
  - Meniscus injury [Unknown]
  - Bursitis [Unknown]
  - Cough [Unknown]

NARRATIVE: CASE EVENT DATE: 200508
